FAERS Safety Report 6909614-8 (Version None)
Quarter: 2010Q3

REPORT INFORMATION
  Report Type: 
  Country: None (occurrence: None)
  Receive Date: 20100805
  Receipt Date: 20100612
  Transmission Date: 20110219
  Serious: No
  Sender: FDA-Public Use
  Company Number: US-TYCO HEALTHCARE/MALLINCKRODT-T201001435

PATIENT

DRUGS (7)
  1. FENTANYL CITRATE [Suspect]
     Indication: HEADACHE
     Dosage: 400 UG/HR, PRN
     Route: 048
     Dates: start: 20100517
  2. METHADONE HCL [Concomitant]
     Indication: HEADACHE
     Dosage: QD
  3. TOPAMAX [Concomitant]
     Indication: HEADACHE
     Dosage: PRN
  4. CLONAZEPAM [Concomitant]
     Indication: HEADACHE
     Dosage: PRN
  5. ZANAFLEX [Concomitant]
     Indication: HEADACHE
     Dosage: PRN
  6. PHENERGAN HCL [Concomitant]
     Indication: NAUSEA
     Dosage: PRN
  7. SYNTHROID [Concomitant]
     Indication: THYROID DISORDER
     Dosage: UNK

REACTIONS (2)
  - OFF LABEL USE [None]
  - PRODUCT TASTE ABNORMAL [None]
